FAERS Safety Report 10236481 (Version 1)
Quarter: 2014Q2

REPORT INFORMATION
  Report Type: Spontaneous
  Country: US (occurrence: US)
  Receive Date: 20140613
  Receipt Date: 20140613
  Transmission Date: 20141212
  Serious: Yes (Other)
  Sender: FDA-Public Use
  Company Number: US-BRISTOL-MYERS SQUIBB COMPANY-20952438

PATIENT
  Age: 69 Year
  Sex: Male

DRUGS (2)
  1. BYDUREON [Suspect]
     Indication: DIABETES MELLITUS
     Route: 058
     Dates: start: 201401
  2. GLUCOPHAGE [Concomitant]
     Indication: DIABETES MELLITUS

REACTIONS (2)
  - Non-small cell lung cancer [Unknown]
  - Injection site mass [Unknown]
